FAERS Safety Report 17752035 (Version 1)
Quarter: 2020Q2

REPORT INFORMATION
  Report Type: Spontaneous
  Country: PL (occurrence: PL)
  Receive Date: 20200506
  Receipt Date: 20200506
  Transmission Date: 20200714
  Serious: Yes (Hospitalization)
  Sender: FDA-Public Use
  Company Number: NVSC2020PL111286

PATIENT
  Age: 67 Year
  Sex: Male
  Weight: 81 kg

DRUGS (11)
  1. TACROLIMUS. [Suspect]
     Active Substance: TACROLIMUS
     Dosage: 2 MG, UNKNOWN FREQ.
     Route: 048
     Dates: start: 20190115
  2. EVEROLIMUS. [Concomitant]
     Active Substance: EVEROLIMUS
     Indication: IMMUNOSUPPRESSION
     Dosage: 1 DF, QD
     Route: 065
     Dates: start: 20190116
  3. TACROLIMUS. [Suspect]
     Active Substance: TACROLIMUS
     Dosage: 2 MG, UNKNOWN FREQ.
     Route: 048
     Dates: start: 20180515
  4. PREDNISONE. [Concomitant]
     Active Substance: PREDNISONE
     Dosage: 5 OT, QD
     Route: 065
     Dates: start: 20171204
  5. TACROLIMUS. [Suspect]
     Active Substance: TACROLIMUS
     Indication: RENAL TRANSPLANT
     Dosage: 6 MG, UNKNOWN
     Route: 048
     Dates: start: 20170920
  6. TACROLIMUS. [Suspect]
     Active Substance: TACROLIMUS
     Indication: IMMUNOSUPPRESSION
     Dosage: 3 MG, UNKNOWN FREQ.
     Route: 048
     Dates: start: 20180227
  7. TACROLIMUS. [Suspect]
     Active Substance: TACROLIMUS
     Dosage: 1.5 MG, UNKNOWN FREQ.
     Route: 048
     Dates: start: 20181002
  8. TACROLIMUS. [Suspect]
     Active Substance: TACROLIMUS
     Dosage: 2.5 MG, UNKNOWN FREQ.
     Route: 048
     Dates: start: 20180410
  9. TACROLIMUS. [Suspect]
     Active Substance: TACROLIMUS
     Dosage: 1.5 MG, QD
     Route: 048
     Dates: start: 20190219
  10. PREDNISONE. [Concomitant]
     Active Substance: PREDNISONE
     Indication: IMMUNOSUPPRESSION
     Dosage: 1 DF, QD
     Route: 065
     Dates: start: 20171204
  11. EVEROLIMUS. [Concomitant]
     Active Substance: EVEROLIMUS
     Dosage: 2 OT, QD
     Route: 065
     Dates: start: 20190116

REACTIONS (2)
  - Biliary cyst [Recovered/Resolved with Sequelae]
  - Biliary cyst [Recovered/Resolved]

NARRATIVE: CASE EVENT DATE: 20191212
